FAERS Safety Report 8865752 (Version 1)
Quarter: 2012Q4

REPORT INFORMATION
  Report Type: 
  Country: US (occurrence: US)
  Receive Date: 20121024
  Receipt Date: 20121024
  Transmission Date: 20130627
  Serious: No
  Sender: FDA-Public Use
  Company Number: US-AMGEN-USASP2011063687

PATIENT
  Age: 51 Year
  Sex: Female

DRUGS (16)
  1. ENBREL [Suspect]
     Indication: RHEUMATOID ARTHRITIS
     Dosage: 50 mg, qwk
     Dates: start: 20110615
  2. CYMBALTA [Concomitant]
     Dosage: 20 mg, UNK
  3. PLAQUENIL                          /00072602/ [Concomitant]
     Dosage: 200 mg, UNK
  4. METHOTREXATE [Concomitant]
     Dosage: 2.5 mg, UNK
  5. TRILIPIX [Concomitant]
     Dosage: 45 mg, UNK
  6. HYDROCHLOROTH [Concomitant]
     Dosage: 12.5 mg, UNK
  7. GABAPENTIN [Concomitant]
     Dosage: 100 mg, UNK
  8. LEVOTHYROXIN [Concomitant]
     Dosage: UNK
  9. METOPROLOL [Concomitant]
     Dosage: 100 mg, UNK
  10. NEXIUM                             /01479302/ [Concomitant]
     Dosage: 20 mg, UNK
  11. TEMAZEPAM [Concomitant]
     Dosage: 30 mg, UNK
  12. VITAMIN E                          /00110501/ [Concomitant]
     Dosage: UNK
  13. IRON [Concomitant]
     Dosage: 18 mg, UNK
  14. FOLIC ACID [Concomitant]
     Dosage: UNK
  15. TYLENOL /00020001/ [Concomitant]
     Dosage: 325 mg, UNK
  16. L-LYSINE                           /00919901/ [Concomitant]
     Dosage: 500 mg, UNK

REACTIONS (5)
  - Rhinorrhoea [Unknown]
  - Sinusitis [Unknown]
  - Injection site pain [Not Recovered/Not Resolved]
  - Injection site erythema [Not Recovered/Not Resolved]
  - Injection site pruritus [Not Recovered/Not Resolved]
